FAERS Safety Report 12409339 (Version 5)
Quarter: 2018Q1

REPORT INFORMATION
  Report Type: Spontaneous
  Country: US (occurrence: US)
  Receive Date: 20160526
  Receipt Date: 20180216
  Transmission Date: 20180508
  Serious: Yes (Hospitalization, Other)
  Sender: FDA-Public Use
  Company Number: US-BIOMARINAP-US-2016-109932

PATIENT
  Age: 1 Year
  Sex: Male

DRUGS (2)
  1. ALDURAZYME [Suspect]
     Active Substance: LARONIDASE
     Indication: MUCOPOLYSACCHARIDOSIS I
     Dosage: UNK
     Route: 041
     Dates: start: 20150924, end: 201607
  2. ALDURAZYME [Suspect]
     Active Substance: LARONIDASE
     Dosage: UNK
     Route: 041

REACTIONS (5)
  - Neurological symptom [Recovering/Resolving]
  - Cerebrovascular accident [Recovering/Resolving]
  - Respiratory distress [Unknown]
  - Thrombocytopenia [Unknown]
  - Poor venous access [Unknown]

NARRATIVE: CASE EVENT DATE: 20160201
